FAERS Safety Report 16942742 (Version 1)
Quarter: 2019Q4

REPORT INFORMATION
  Report Type: Spontaneous
  Country: US (occurrence: US)
  Receive Date: 20191021
  Receipt Date: 20191021
  Transmission Date: 20200122
  Serious: No
  Sender: FDA-Public Use
  Company Number: US-IBSA PHARMA-TIR-2019-0513

PATIENT
  Sex: Female
  Weight: 50.85 kg

DRUGS (2)
  1. TIROSINT [Suspect]
     Active Substance: LEVOTHYROXINE SODIUM
     Indication: HYPOTHYROIDISM
     Dosage: 75MCG DAILY ON TUESDAY, THURSDAY, SATURDAY, AND SUNDAY
     Route: 048
  2. TIROSINT [Suspect]
     Active Substance: LEVOTHYROXINE SODIUM
     Indication: HYPOTHYROIDISM
     Dosage: 50MCG DAILY ON MONDAY, WEDNESDAY AND FRIDAY
     Route: 048

REACTIONS (1)
  - Anaesthetic complication [Not Recovered/Not Resolved]
